FAERS Safety Report 12524921 (Version 7)
Quarter: 2016Q4

REPORT INFORMATION
  Report Type: Spontaneous
  Country: US (occurrence: US)
  Receive Date: 20160704
  Receipt Date: 20161205
  Transmission Date: 20170207
  Serious: Yes (Other)
  Sender: FDA-Public Use
  Company Number: US-TEVA-672215USA

PATIENT
  Sex: Female

DRUGS (6)
  1. VOLTAREN [Concomitant]
     Active Substance: DICLOFENAC SODIUM
     Indication: PAIN
  2. ZECUITY [Suspect]
     Active Substance: SUMATRIPTAN SUCCINATE
     Indication: MIGRAINE
     Route: 062
     Dates: start: 201603, end: 201603
  3. ZECUITY [Suspect]
     Active Substance: SUMATRIPTAN SUCCINATE
     Route: 062
     Dates: start: 201602, end: 201602
  4. BOTOX [Concomitant]
     Active Substance: ONABOTULINUMTOXINA
  5. PREMARIN [Concomitant]
     Active Substance: ESTROGENS, CONJUGATED
  6. XANAX [Concomitant]
     Active Substance: ALPRAZOLAM
     Indication: SLEEP DISORDER

REACTIONS (23)
  - Sunburn [Recovered/Resolved]
  - Application site pruritus [Recovered/Resolved]
  - Application site exfoliation [Recovered/Resolved]
  - Drug effect incomplete [Unknown]
  - Application site warmth [Recovered/Resolved]
  - Application site burn [Recovered/Resolved]
  - Application site scar [Recovered/Resolved]
  - Dysgeusia [Recovered/Resolved]
  - Application site pain [Recovered/Resolved]
  - Application site scab [Recovered/Resolved]
  - Application site hypoaesthesia [Recovered/Resolved]
  - Application site erythema [Recovered/Resolved]
  - Wrong technique in product usage process [Recovered/Resolved]
  - Application site paraesthesia [Recovered/Resolved]
  - Application site papules [Recovered/Resolved]
  - Application site urticaria [Recovered/Resolved]
  - Application site discomfort [Recovered/Resolved]
  - Burns first degree [Recovered/Resolved]
  - Application site irritation [Recovered/Resolved]
  - Product leakage [Unknown]
  - Application site vesicles [Recovered/Resolved]
  - Application site discolouration [Recovered/Resolved]
  - Application site erosion [Recovered/Resolved]

NARRATIVE: CASE EVENT DATE: 2016
